FAERS Safety Report 9276396 (Version 1)
Quarter: 2013Q2

REPORT INFORMATION
  Report Type: Report from Study
  Country: EC (occurrence: EC)
  Receive Date: 20130507
  Receipt Date: 20130507
  Transmission Date: 20140414
  Serious: Yes (Hospitalization)
  Sender: FDA-Public Use
  Company Number: PHHY2013EC042454

PATIENT
  Age: 88 Year
  Sex: Male

DRUGS (2)
  1. EXELON PATCH [Suspect]
     Indication: DEMENTIA ALZHEIMER^S TYPE
     Dosage: 9.5 MG, DAILY
     Route: 062
     Dates: start: 20130204
  2. ANALGAN [Concomitant]
     Indication: HEADACHE
     Dosage: UNK UKN, QD
     Route: 048

REACTIONS (2)
  - Arthropod bite [Recovered/Resolved]
  - Wound infection [Recovered/Resolved]
